FAERS Safety Report 11588677 (Version 2)
Quarter: 2016Q1

REPORT INFORMATION
  Report Type: Spontaneous
  Country: US (occurrence: US)
  Receive Date: 20151002
  Receipt Date: 20160318
  Transmission Date: 20160525
  Serious: Yes (Death, Hospitalization, Other)
  Sender: FDA-Public Use
  Company Number: US-ACTAVIS-2015-20822

PATIENT
  Age: 88 Year
  Sex: Female

DRUGS (7)
  1. HALOPERIDOL (WATSON LABORATORIES) [Suspect]
     Active Substance: HALOPERIDOL
     Indication: CONFUSIONAL STATE
  2. MEMANTINE HYDROCHLORIDE (UNKNOWN) [Suspect]
     Active Substance: MEMANTINE HYDROCHLORIDE
     Indication: CONFUSIONAL STATE
  3. HALOPERIDOL (WATSON LABORATORIES) [Suspect]
     Active Substance: HALOPERIDOL
     Indication: AGITATION
     Dosage: UNK
     Route: 065
  4. MEMANTINE HYDROCHLORIDE (UNKNOWN) [Suspect]
     Active Substance: MEMANTINE HYDROCHLORIDE
     Indication: AGITATION
     Dosage: UNK
     Route: 065
  5. LORAZEPAM (WATSON LABORATORIES) [Suspect]
     Active Substance: LORAZEPAM
     Indication: CONFUSIONAL STATE
     Dosage: UNK
     Route: 065
  6. LORAZEPAM (WATSON LABORATORIES) [Suspect]
     Active Substance: LORAZEPAM
     Indication: AGITATION
  7. FLEXERIL [Suspect]
     Active Substance: CYCLOBENZAPRINE HYDROCHLORIDE
     Indication: OSTEOARTHRITIS
     Dosage: UNK
     Route: 065

REACTIONS (4)
  - Nosocomial infection [Fatal]
  - Malnutrition [Unknown]
  - Delirium [Unknown]
  - Condition aggravated [Unknown]
